FAERS Safety Report 12077583 (Version 2)
Quarter: 2016Q2

REPORT INFORMATION
  Report Type: Report from Study
  Country: CO (occurrence: CO)
  Receive Date: 20160215
  Receipt Date: 20160601
  Transmission Date: 20160815
  Serious: Yes (Death, Hospitalization, Disabling, Other)
  Sender: FDA-Public Use
  Company Number: CO-AMGEN-COLSL2015128345

PATIENT
  Age: 43 Year
  Sex: Female
  Weight: 52 kg

DRUGS (1)
  1. VECTIBIX [Suspect]
     Active Substance: PANITUMUMAB
     Indication: COLORECTAL CANCER METASTATIC
     Dosage: 300 MG, EVERY 2 WEEKS (FORTNIGHTLY)
     Route: 065
     Dates: start: 20150526, end: 20160425

REACTIONS (6)
  - Nephrostomy [Unknown]
  - Urinary tract infection [Recovered/Resolved]
  - Metastases to ovary [Not Recovered/Not Resolved]
  - Neoplasm malignant [Fatal]
  - Metastases to spleen [Not Recovered/Not Resolved]
  - Metastases to liver [Not Recovered/Not Resolved]

NARRATIVE: CASE EVENT DATE: 2015
